FAERS Safety Report 9869941 (Version 1)
Quarter: 2014Q1

REPORT INFORMATION
  Report Type: Spontaneous
  Country: DK (occurrence: CA)
  Receive Date: 20140205
  Receipt Date: 20140205
  Transmission Date: 20141002
  Serious: Yes (Other)
  Sender: FDA-Public Use
  Company Number: CA-FRI-1000053375

PATIENT
  Age: 58 Year
  Sex: Male

DRUGS (2)
  1. ESCITALOPRAM [Suspect]
     Indication: ANXIETY
     Dosage: 20 MG
     Route: 048
  2. FORTEO [Concomitant]
     Dates: start: 201309

REACTIONS (2)
  - Hip fracture [Recovered/Resolved]
  - Osteoporosis [Not Recovered/Not Resolved]
